FAERS Safety Report 16575627 (Version 2)
Quarter: 2019Q3

REPORT INFORMATION
  Report Type: Spontaneous
  Country: US (occurrence: US)
  Receive Date: 20190716
  Receipt Date: 20190719
  Transmission Date: 20191004
  Serious: No
  Sender: FDA-Public Use
  Company Number: US-JNJFOC-20190637415

PATIENT
  Age: 72 Year
  Sex: Female

DRUGS (1)
  1. MENS ROGAINE EXTRA STRENGTH [Suspect]
     Active Substance: MINOXIDIL
     Indication: ALOPECIA
     Route: 061

REACTIONS (6)
  - Malaise [Recovered/Resolved]
  - Product use issue [Unknown]
  - Hair disorder [Recovered/Resolved]
  - Alopecia [Recovering/Resolving]
  - Hair growth abnormal [Recovered/Resolved]
  - Off label use [Unknown]
